FAERS Safety Report 6836380-7 (Version None)
Quarter: 2010Q3

REPORT INFORMATION
  Report Type: 
  Country: None (occurrence: None)
  Receive Date: 20100713
  Receipt Date: 20100630
  Transmission Date: 20110219
  Serious: Yes (Other)
  Sender: FDA-Public Use
  Company Number: SV-ELI_LILLY_AND_COMPANY-SV201007000526

PATIENT
  Age: 85 Year
  Sex: Male

DRUGS (1)
  1. OLANZAPINE [Suspect]
     Indication: PSYCHOTIC DISORDER
     Dosage: 5 MG, EACH EVENING
     Route: 065
     Dates: start: 20100601, end: 20100601

REACTIONS (2)
  - DYSPNOEA [None]
  - PULMONARY EMBOLISM [None]
